FAERS Safety Report 15759921 (Version 4)
Quarter: 2019Q1

REPORT INFORMATION
  Report Type: Report from Study
  Country: AR (occurrence: AR)
  Receive Date: 20181226
  Receipt Date: 20190319
  Transmission Date: 20190417
  Serious: Yes (Death, Other)
  Sender: FDA-Public Use
  Company Number: AR-TAKEDA-2018TUS036668

PATIENT

DRUGS (1)
  1. PONATINIB [Suspect]
     Active Substance: PONATINIB
     Indication: CHRONIC MYELOID LEUKAEMIA
     Dosage: 15 MILLIGRAM, QD
     Route: 065

REACTIONS (2)
  - Off label use [Unknown]
  - Chronic myeloid leukaemia transformation [Fatal]
